FAERS Safety Report 10383657 (Version 1)
Quarter: 2014Q1

REPORT INFORMATION
  Report Type: Spontaneous
  Country: US (occurrence: None)
  Receive Date: 20140306
  Receipt Date: 20140306
  Transmission Date: 20141002
  Serious: Yes (Hospitalization, Other)
  Sender: FDA-Public Use
  Company Number: 163-21880-13081200

PATIENT
  Age: 63 Year
  Sex: Male

DRUGS (14)
  1. REVLIMID (LENALIDOMIDE) (10 MILLIGRAM, CAPSULES) [Suspect]
     Indication: PLASMA CELL MYELOMA
     Dosage: 6.6667 MG, 14 IN 21 D, PO
     Route: 048
     Dates: start: 201211
  2. DEXAMETHASONE [Concomitant]
  3. CHILDRENS VITAMIN D (ERGOCALCIFEROL) [Concomitant]
  4. MULTIVITAMINS [Concomitant]
  5. VELCADE (BORTEZOMIB) [Concomitant]
  6. BACTRIM [Concomitant]
  7. OXYCODONE-ACETAMINOPHEN (OXYCOCET) [Concomitant]
  8. ASPIRIN (ACETYLSALICYLIC ACID) [Concomitant]
  9. VALACICLOVIR [Concomitant]
  10. ATIVAN (LOREZEPAM) [Concomitant]
  11. PREDNISONE [Concomitant]
  12. COLACE (DOCUSATE SODIUM) [Concomitant]
  13. SENOKOT (SENNA FRUIT) [Concomitant]
  14. MIRALAX (MACROGOL) [Concomitant]

REACTIONS (2)
  - White blood cell count decreased [None]
  - Neutropenia [None]
